FAERS Safety Report 8811709 (Version 2)
Quarter: 2012Q4

REPORT INFORMATION
  Report Type: Spontaneous
  Country: FR (occurrence: None)
  Receive Date: 20120924
  Receipt Date: 20121022
  Transmission Date: 20130627
  Serious: Yes (Hospitalization)
  Sender: FDA-Public Use
  Company Number: DSA_59718_2012

PATIENT
  Age: 84 Year
  Sex: Female

DRUGS (7)
  1. MONO TILDIEM [Suspect]
     Indication: HYPERTENSION
     Route: 048
     Dates: end: 20120830
  2. LASILIX [Suspect]
     Indication: HYPERTENSION
     Route: 048
     Dates: end: 20120827
  3. XANAX [Suspect]
     Indication: PRODUCT USED FOR UNKNOWN INDICATION
     Route: 048
  4. NORSET [Suspect]
     Indication: PRODUCT USED FOR UNKNOWN INDICATION
     Route: 048
     Dates: end: 20120830
  5. TAHOR [Suspect]
     Indication: HYPERCHOLESTEROLAEMIA
     Route: 048
     Dates: end: 20120830
  6. COTAREG [Suspect]
     Indication: HYPERTENSION
     Route: 048
     Dates: end: 20120830
  7. HYPERIUM [Suspect]
     Indication: HYPERTENSION
     Route: 048
     Dates: end: 20120830

REACTIONS (5)
  - Hepatocellular injury [None]
  - Cholestasis [None]
  - Renal failure acute [None]
  - Hepatotoxicity [None]
  - Nephropathy toxic [None]
